FAERS Safety Report 13676754 (Version 2)
Quarter: 2017Q3

REPORT INFORMATION
  Report Type: Spontaneous
  Country: IT (occurrence: IT)
  Receive Date: 20170622
  Receipt Date: 20170718
  Transmission Date: 20171127
  Serious: Yes (Other)
  Sender: FDA-Public Use
  Company Number: IT-ROCHE-1953343

PATIENT
  Age: 49 Year
  Sex: Male

DRUGS (1)
  1. RIVOTRIL [Suspect]
     Active Substance: CLONAZEPAM
     Indication: PRODUCT USED FOR UNKNOWN INDICATION
     Dosage: ^0.5 MG TABLETS^ 20 TABLETS
     Route: 048

REACTIONS (1)
  - Injury [Recovering/Resolving]

NARRATIVE: CASE EVENT DATE: 20170515
